FAERS Safety Report 4709774-3 (Version None)
Quarter: 2005Q3

REPORT INFORMATION
  Report Type: 
  Country: None (occurrence: None)
  Receive Date: 20050707
  Receipt Date: 20050616
  Transmission Date: 20060218
  Serious: Yes (Other)
  Sender: FDA-Public Use
  Company Number: US_0504115100

PATIENT
  Sex: Female
  Weight: 76 kg

DRUGS (5)
  1. ZYPREXA [Suspect]
     Dosage: 220 MG
     Dates: start: 20000101
  2. DIVALPROEX (VALPROATE SEMISODIUM) [Concomitant]
  3. CARBAMAZEPINE [Concomitant]
  4. GLYBURIDE [Concomitant]
  5. METFORMIN [Concomitant]

REACTIONS (2)
  - ANXIETY [None]
  - PAIN [None]
